FAERS Safety Report 5119639-3 (Version None)
Quarter: 2006Q3

REPORT INFORMATION
  Report Type: 
  Country: None (occurrence: None)
  Receive Date: 20060929
  Receipt Date: 20060919
  Transmission Date: 20061208
  Serious: Yes (Other)
  Sender: FDA-Public Use
  Company Number: 2006112886

PATIENT
  Age: 70 Year
  Sex: Male
  Weight: 72.5755 kg

DRUGS (4)
  1. LIPITOR [Suspect]
     Indication: BLOOD CHOLESTEROL INCREASED
     Dosage: 40 MG (40 MG, 1 IN 1 D), UNKNOWN
     Dates: start: 20030101, end: 20060701
  2. TOPROL-XL [Concomitant]
  3. LISINOPRIL [Concomitant]
  4. THYROID TAB [Concomitant]

REACTIONS (5)
  - AGGRESSION [None]
  - AGITATION [None]
  - ANGER [None]
  - BLOOD SODIUM DECREASED [None]
  - PNEUMONIA [None]
